FAERS Safety Report 14838574 (Version 2)
Quarter: 2018Q3

REPORT INFORMATION
  Report Type: Other
  Country: FR (occurrence: FR)
  Receive Date: 20180502
  Receipt Date: 20180802
  Transmission Date: 20181010
  Serious: Yes (Hospitalization)
  Sender: FDA-Public Use
  Company Number: FR-RARE DISEASE THERAPEUTICS, INC.-2047026

PATIENT
  Age: 13 Year
  Sex: Female

DRUGS (21)
  1. MERCAPTOPURINE. [Suspect]
     Active Substance: MERCAPTOPURINE
     Route: 048
     Dates: start: 20170824
  2. METHOTREXATE. [Suspect]
     Active Substance: METHOTREXATE
     Route: 037
     Dates: start: 20170516
  3. CYTARABINE. [Suspect]
     Active Substance: CYTARABINE
     Route: 042
     Dates: start: 20170630
  4. HYDROCORTISONE. [Suspect]
     Active Substance: HYDROCORTISONE
     Route: 037
  5. CYCLOPHOSPHAMIDE. [Suspect]
     Active Substance: CYCLOPHOSPHAMIDE
     Route: 042
     Dates: start: 20170628
  6. ADRIAMYCIN [Suspect]
     Active Substance: DOXORUBICIN HYDROCHLORIDE
     Route: 042
     Dates: start: 20171030
  7. VINCRISTINE [Suspect]
     Active Substance: VINCRISTINE
     Route: 042
  8. DAUNORUBICIN [Suspect]
     Active Substance: DAUNORUBICIN
     Route: 042
     Dates: start: 20170523, end: 20170613
  9. HYDROCORTISONE. [Suspect]
     Active Substance: HYDROCORTISONE
     Route: 037
     Dates: start: 20170528
  10. DEXAMETHASONE. [Suspect]
     Active Substance: DEXAMETHASONE
     Route: 048
     Dates: start: 20171030
  11. DAUNORUBICIN [Suspect]
     Active Substance: DAUNORUBICIN
     Route: 042
     Dates: start: 20170613
  12. CYTARABINE. [Suspect]
     Active Substance: CYTARABINE
     Route: 037
  13. CYTARABINE. [Suspect]
     Active Substance: CYTARABINE
     Route: 037
     Dates: start: 20170528
  14. CRISANTASPASE [Suspect]
     Active Substance: ASPARAGINASE ERWINIA CHRYSANTHEMI
     Route: 042
     Dates: start: 20171102, end: 20171114
  15. PEGASPARGASE [Suspect]
     Active Substance: PEGASPARGASE
     Route: 042
     Dates: start: 20170527, end: 20170712
  16. VINCRISTINE [Suspect]
     Active Substance: VINCRISTINE
     Route: 042
     Dates: start: 20170523
  17. METHOTREXATE. [Suspect]
     Active Substance: METHOTREXATE
     Route: 037
  18. DEXAMETHASONE. [Suspect]
     Active Substance: DEXAMETHASONE
     Route: 048
  19. PREDNISONE. [Suspect]
     Active Substance: PREDNISONE
     Route: 048
     Dates: start: 20170516, end: 20170613
  20. ERWINASE [Suspect]
     Active Substance: ASPARAGINASE ERWINIA CHRYSANTHEMI
     Route: 042
     Dates: start: 20171102, end: 20171114
  21. PURIXAN [Suspect]
     Active Substance: MERCAPTOPURINE
     Indication: ACUTE LYMPHOCYTIC LEUKAEMIA
     Route: 048
     Dates: start: 20170628

REACTIONS (4)
  - Pain in extremity [Recovered/Resolved]
  - Neuropathy peripheral [Recovered/Resolved]
  - Breakthrough pain [Recovered/Resolved]
  - Neuralgia [Recovered/Resolved]

NARRATIVE: CASE EVENT DATE: 20171120
